FAERS Safety Report 18816806 (Version 1)
Quarter: 2021Q1

REPORT INFORMATION
  Report Type: Spontaneous
  Country: DE (occurrence: DE)
  Receive Date: 20210201
  Receipt Date: 20210201
  Transmission Date: 20210419
  Serious: Yes (Other)
  Sender: FDA-Public Use
  Company Number: DE-ASTRAZENECA-2021A016654

PATIENT
  Age: 49 Year
  Sex: Female
  Weight: 69.8 kg

DRUGS (1)
  1. PULMICORT TURBUHALER [Suspect]
     Active Substance: BUDESONIDE
     Indication: ASTHMA
     Dosage: 1.0DF UNKNOWN
     Route: 055
     Dates: start: 202003, end: 202101

REACTIONS (1)
  - Hyperaesthesia teeth [Not Recovered/Not Resolved]
